FAERS Safety Report 7947301-8 (Version None)
Quarter: 2011Q4

REPORT INFORMATION
  Report Type: 
  Country: None (occurrence: None)
  Receive Date: 20111130
  Receipt Date: 20111118
  Transmission Date: 20120403
  Serious: Yes (Other)
  Sender: FDA-Public Use
  Company Number: FR-BIOGENIDEC-2011BI023602

PATIENT
  Age: 34 Year
  Sex: Female
  Weight: 55 kg

DRUGS (3)
  1. TYSABRI [Suspect]
     Indication: MULTIPLE SCLEROSIS
     Route: 042
     Dates: start: 20071130, end: 20110415
  2. GABAPENTIN [Concomitant]
     Indication: PARAESTHESIA
     Dates: start: 20100706, end: 20110401
  3. TYSABRI [Suspect]
     Route: 042
     Dates: end: 20110704

REACTIONS (1)
  - BREAST CANCER [None]
